FAERS Safety Report 26081470 (Version 1)
Quarter: 2025Q4

REPORT INFORMATION
  Report Type: Report from Study
  Country: CN (occurrence: CN)
  Receive Date: 20251124
  Receipt Date: 20251124
  Transmission Date: 20260117
  Serious: Yes (Other)
  Sender: ROCHE
  Company Number: CN-ROCHE-10000439028

PATIENT
  Age: 53 Year
  Sex: Male

DRUGS (1)
  1. FARICIMAB [Suspect]
     Active Substance: FARICIMAB
     Indication: Diabetic retinal oedema
     Route: 050
     Dates: start: 20250529

REACTIONS (2)
  - Wound [Not Recovered/Not Resolved]
  - Toe amputation [Not Recovered/Not Resolved]

NARRATIVE: CASE EVENT DATE: 20250801
